FAERS Safety Report 11239456 (Version 9)
Quarter: 2018Q3

REPORT INFORMATION
  Report Type: Report from Study
  Country: CA (occurrence: CA)
  Receive Date: 20150706
  Receipt Date: 20180820
  Transmission Date: 20181010
  Serious: Yes (Hospitalization, Other)
  Sender: FDA-Public Use
  Company Number: CA-ROCHE-1153652

PATIENT
  Age: 68 Year
  Sex: Female
  Weight: 50.85 kg

DRUGS (12)
  1. TYLENOL [Concomitant]
     Active Substance: ACETAMINOPHEN
     Route: 048
     Dates: start: 20121105
  2. PREVACID [Concomitant]
     Active Substance: LANSOPRAZOLE
  3. METHYLPREDNISOLONE. [Concomitant]
     Active Substance: METHYLPREDNISOLONE
     Route: 042
     Dates: start: 20121105
  4. CELEBREX [Concomitant]
     Active Substance: CELECOXIB
  5. DIPHENHYDRAMINE HCL [Concomitant]
     Active Substance: DIPHENHYDRAMINE HYDROCHLORIDE
     Indication: PREMEDICATION
     Route: 048
     Dates: start: 20121105
  6. NORVASC [Concomitant]
     Active Substance: AMLODIPINE BESYLATE
  7. RITUXAN [Suspect]
     Active Substance: RITUXIMAB
     Indication: RHEUMATOID ARTHRITIS
     Route: 042
     Dates: start: 20121105
  8. ATACAND [Concomitant]
     Active Substance: CANDESARTAN CILEXETIL
  9. SALAZOPYRIN [Concomitant]
     Active Substance: SULFASALAZINE
  10. CANDESARTAN. [Concomitant]
     Active Substance: CANDESARTAN
     Route: 065
  11. DOCUSATE [Concomitant]
     Active Substance: DOCUSATE
  12. SYNTHROID [Concomitant]
     Active Substance: LEVOTHYROXINE SODIUM

REACTIONS (17)
  - Dry mouth [Unknown]
  - Arthropathy [Unknown]
  - Nausea [Recovered/Resolved]
  - Skin plaque [Recovered/Resolved]
  - Headache [Recovered/Resolved]
  - Pain [Unknown]
  - Cardiac flutter [Unknown]
  - Infusion related reaction [Unknown]
  - Blood pressure increased [Unknown]
  - Angina pectoris [Recovered/Resolved]
  - Heart rate decreased [Unknown]
  - Pharyngeal paraesthesia [Recovered/Resolved]
  - Blood pressure systolic increased [Unknown]
  - Hyponatraemia [Recovered/Resolved]
  - Delirium [Recovered/Resolved]
  - Hypertension [Not Recovered/Not Resolved]
  - Oxygen saturation decreased [Unknown]

NARRATIVE: CASE EVENT DATE: 20121105
